FAERS Safety Report 8347443-1 (Version None)
Quarter: 2012Q2

REPORT INFORMATION
  Report Type: 
  Country: None (occurrence: None)
  Receive Date: 20120509
  Receipt Date: 19990212
  Transmission Date: 20120825
  Serious: Yes (Death, Hospitalization, Other)
  Sender: FDA-Public Use
  Company Number: CH-ROCHE-200662

PATIENT
  Sex: Female
  Weight: 57 kg

DRUGS (4)
  1. TENORMIN [Concomitant]
  2. ASPIRIN [Concomitant]
  3. XELODA [Suspect]
     Indication: BREAST CANCER
     Route: 065
     Dates: start: 19981015, end: 19981025
  4. INFLUENZA VACCINE [Concomitant]
     Dates: start: 19981120, end: 19981120

REACTIONS (14)
  - ESCHERICHIA SEPSIS [None]
  - CANDIDIASIS [None]
  - DYSURIA [None]
  - BONE MARROW FAILURE [None]
  - MUCOSAL INFLAMMATION [None]
  - NAUSEA [None]
  - VOMITING [None]
  - GENERAL PHYSICAL HEALTH DETERIORATION [None]
  - TACHYPNOEA [None]
  - NEOPLASM MALIGNANT [None]
  - DEHYDRATION [None]
  - DECREASED APPETITE [None]
  - DIARRHOEA [None]
  - POLLAKIURIA [None]
